FAERS Safety Report 10263277 (Version 2)
Quarter: 2014Q2

REPORT INFORMATION
  Report Type: Report from Study
  Country: US (occurrence: US)
  Receive Date: 20140626
  Receipt Date: 20140626
  Transmission Date: 20141212
  Serious: Yes (Other)
  Sender: FDA-Public Use
  Company Number: US-MYLANLABS-2012S1007500

PATIENT
  Age: 31 Year
  Sex: Male
  Weight: 91.17 kg

DRUGS (9)
  1. CLOZAPINE TABLETS [Suspect]
     Indication: SCHIZOPHRENIA
     Dates: end: 2012
  2. CLOZAPINE TABLETS [Suspect]
     Indication: SCHIZOPHRENIA
     Dates: start: 20120703
  3. CLOZAPINE TABLETS [Suspect]
     Indication: SCHIZOPHRENIA
     Route: 048
     Dates: end: 20140320
  4. CLOZAPINE TABLETS [Suspect]
     Indication: SCHIZOPHRENIA
     Route: 048
     Dates: start: 20140203, end: 201404
  5. CLOZAPINE TABLETS [Suspect]
     Indication: SCHIZOPHRENIA
  6. MYCOPHENOLATE [Concomitant]
  7. VITAMIN D [Concomitant]
     Dates: start: 201302
  8. HYDROCHLOROTHIAZIDE/LISINOPRIL [Concomitant]
     Dates: start: 201203
  9. PREDNISONE [Concomitant]
     Dates: start: 201210

REACTIONS (2)
  - Granulocytopenia [Recovered/Resolved]
  - Leukopenia [Not Recovered/Not Resolved]
